FAERS Safety Report 8704754 (Version 3)
Quarter: 2012Q4

REPORT INFORMATION
  Report Type: Report from Study
  Country: DE (occurrence: DE)
  Receive Date: 20120803
  Receipt Date: 20121114
  Transmission Date: 20130627
  Serious: Yes (Hospitalization)
  Sender: FDA-Public Use
  Company Number: DE-AMGEN-DEUCT2012046877

PATIENT
  Age: 56 Year
  Sex: Female
  Weight: 59 kg

DRUGS (4)
  1. PANITUMUMAB [Suspect]
     Indication: GASTRIC CANCER
     Dosage: 9 mg/kg, UNK
     Route: 042
     Dates: start: 20120309
  2. EPIRUBICIN [Concomitant]
     Indication: GASTRIC CANCER
     Dosage: 50 mg/m2, UNK
     Route: 042
     Dates: start: 20120309
  3. CISPLATIN [Concomitant]
     Indication: GASTRIC CANCER
     Dosage: 60 mg/m2, UNK
     Route: 042
     Dates: start: 20120309
  4. CAPECITABINE [Concomitant]
     Indication: GASTRIC CANCER
     Dosage: 625 mg/m2, UNK
     Route: 048
     Dates: start: 20120309

REACTIONS (4)
  - Hypocalcaemia [Recovered/Resolved]
  - Hypokalaemia [Recovered/Resolved]
  - Vomiting [Recovered/Resolved]
  - Nausea [Recovered/Resolved]
